FAERS Safety Report 17718468 (Version 1)
Quarter: 2020Q2

REPORT INFORMATION
  Report Type: Spontaneous
  Country: SE (occurrence: SE)
  Receive Date: 20200428
  Receipt Date: 20200428
  Transmission Date: 20200714
  Serious: Yes (Disabling)
  Sender: FDA-Public Use
  Company Number: SE-MYLANLABS-2020M1041702

PATIENT
  Age: 36 Year
  Sex: Female
  Weight: 111 kg

DRUGS (1)
  1. ACETYLCYSTEIN MYLAN 200 MG BRUSTABLETTER [Suspect]
     Active Substance: ACETYLCYSTEINE
     Indication: SINUSITIS
     Dosage: UNK
     Dates: start: 20200304, end: 20200305

REACTIONS (1)
  - Anxiety [Recovered/Resolved]

NARRATIVE: CASE EVENT DATE: 202003
